FAERS Safety Report 4633296-1 (Version None)
Quarter: 2005Q2

REPORT INFORMATION
  Report Type: 
  Country: None (occurrence: None)
  Receive Date: 20050408
  Receipt Date: 20050329
  Transmission Date: 20051028
  Serious: Yes (Hospitalization)
  Sender: FDA-Public Use
  Company Number: 2005CG00538

PATIENT
  Age: 66 Year
  Sex: Male
  Weight: 74 kg

DRUGS (4)
  1. ATACAND [Suspect]
     Indication: HYPERTENSION
     Dosage: 16 MG DAILY PO
     Route: 048
  2. ALLOPURINOL [Suspect]
     Indication: HYPERURICAEMIA
     Dosage: 200 MG DAILY PO
     Route: 048
  3. FENOFIBRATE [Suspect]
     Indication: DYSLIPIDAEMIA
     Dosage: 1 DF DAILY PO
     Route: 048
  4. PREVISCAN [Suspect]
     Indication: PORTAL VEIN THROMBOSIS
     Dosage: 20 MG DAILY PO
     Route: 048
     Dates: start: 20050105, end: 20050207

REACTIONS (6)
  - CHEILITIS [None]
  - CHOLESTASIS [None]
  - CYTOLYTIC HEPATITIS [None]
  - DRUG RASH WITH EOSINOPHILIA AND SYSTEMIC SYMPTOMS [None]
  - HYPOALBUMINAEMIA [None]
  - PROTEIN URINE PRESENT [None]
